FAERS Safety Report 16281199 (Version 2)
Quarter: 2019Q2

REPORT INFORMATION
  Report Type: Spontaneous
  Country: IT (occurrence: IT)
  Receive Date: 20190507
  Receipt Date: 20190522
  Transmission Date: 20190711
  Serious: Yes (Other)
  Sender: FDA-Public Use
  Company Number: PHHY2019IT101469

PATIENT

DRUGS (4)
  1. CARBOPLATIN. [Suspect]
     Active Substance: CARBOPLATIN
     Indication: RHABDOMYOSARCOMA
     Dosage: 250 MG/M2, QD IN 1 HOUR ON DAYS 4 AND 5
     Route: 065
  2. CYCLOPHOSPHAMIDE. [Suspect]
     Active Substance: CYCLOPHOSPHAMIDE
     Indication: RHABDOMYOSARCOMA
     Dosage: 1500 MG/M2, QD IN 4 HOURS ON DAYS 1 AND 2 (TOTAL DOSE 3000 MG/M2)
     Route: 065
  3. TOPOTECAN [Suspect]
     Active Substance: TOPOTECAN HYDROCHLORIDE
     Indication: RHABDOMYOSARCOMA
     Dosage: 2 MG/M2, QD IN 30 MINUTES ON DAYS 1 TO 3 (TOTAL DOSE 6 MG/M2)
     Route: 065
  4. ETOPOSIDE. [Suspect]
     Active Substance: ETOPOSIDE
     Indication: RHABDOMYOSARCOMA
     Dosage: 100 MG/M2, QD IN 1 HOUR ON DAYS 1 TO 3 (TOTAL DOSE 300 MG/M2 COURSE)
     Route: 065

REACTIONS (3)
  - Renal tubular disorder [Recovered/Resolved]
  - Proteinuria [Recovered/Resolved]
  - Product use in unapproved indication [Unknown]
